FAERS Safety Report 5670405-X (Version None)
Quarter: 2008Q1

REPORT INFORMATION
  Report Type: 
  Country: None (occurrence: None)
  Receive Date: 20080318
  Receipt Date: 20080307
  Transmission Date: 20080703
  Serious: Yes (Other)
  Sender: FDA-Public Use
  Company Number: DK-JNJFOC-20080201582

PATIENT
  Sex: Male

DRUGS (6)
  1. REMICADE [Suspect]
     Route: 042
  2. REMICADE [Suspect]
     Route: 042
  3. REMICADE [Suspect]
     Indication: RHEUMATOID ARTHRITIS
     Dosage: 3 INFUSIONS ON UNSPECIFIED DATES
     Route: 042
  4. METHOTREXATE [Concomitant]
     Indication: RHEUMATOID ARTHRITIS
     Route: 058
  5. TRAMADOL HCL [Concomitant]
  6. FOLIC ACID [Concomitant]
     Indication: DRUG USE FOR UNKNOWN INDICATION

REACTIONS (11)
  - CHEST PAIN [None]
  - DISCOMFORT [None]
  - DYSPNOEA [None]
  - ERYTHEMA [None]
  - FACIAL PAIN [None]
  - FLUSHING [None]
  - INFLUENZA [None]
  - INFUSION RELATED REACTION [None]
  - NAUSEA [None]
  - NECK PAIN [None]
  - VOMITING [None]
